FAERS Safety Report 10354244 (Version 1)
Quarter: 2014Q3

REPORT INFORMATION
  Report Type: Spontaneous
  Country: US (occurrence: US)
  Receive Date: 20140731
  Receipt Date: 20140731
  Transmission Date: 20150326
  Serious: Yes (Hospitalization)
  Sender: FDA-Public Use
  Company Number: US-BEH-2014044127

PATIENT
  Age: 57 Year
  Sex: Female
  Weight: 96 kg

DRUGS (51)
  1. MYCOPHENOLATE [Concomitant]
     Active Substance: MYCOPHENOLIC ACID
  2. SODIUM CHLORIDE. [Concomitant]
     Active Substance: SODIUM CHLORIDE
  3. DIOVAN [Concomitant]
     Active Substance: VALSARTAN
  4. LANTUS [Concomitant]
     Active Substance: INSULIN GLARGINE
  5. PRILOSEC [Concomitant]
     Active Substance: OMEPRAZOLE MAGNESIUM
  6. FLUDROCORTISONE [Concomitant]
     Active Substance: FLUDROCORTISONE
  7. SPIRIVA [Concomitant]
     Active Substance: TIOTROPIUM BROMIDE MONOHYDRATE
  8. ACETAMINOPHEN. [Concomitant]
     Active Substance: ACETAMINOPHEN
  9. POTASSIUM CHLORIDE. [Concomitant]
     Active Substance: POTASSIUM CHLORIDE
  10. LEVOXYL [Concomitant]
     Active Substance: LEVOTHYROXINE SODIUM
  11. ALL OTHER THERAPEUTIC PRODUCTS [Concomitant]
     Active Substance: UNSPECIFIED INGREDIENT
  12. FUROSEMIDE. [Concomitant]
     Active Substance: FUROSEMIDE
  13. PRAVASTATIN [Concomitant]
     Active Substance: PRAVASTATIN\PRAVASTATIN SODIUM
  14. PREDNISONE. [Concomitant]
     Active Substance: PREDNISONE
  15. PERCOCET [Concomitant]
     Active Substance: ACETAMINOPHEN\OXYCODONE HYDROCHLORIDE
  16. LOSARTAN [Concomitant]
     Active Substance: LOSARTAN
  17. CHLORTHALIDONE. [Concomitant]
     Active Substance: CHLORTHALIDONE
  18. MAGNESIUM OXIDE. [Concomitant]
     Active Substance: MAGNESIUM OXIDE
  19. EPINEPHRINE. [Concomitant]
     Active Substance: EPINEPHRINE
  20. PLAVIX [Concomitant]
     Active Substance: CLOPIDOGREL BISULFATE
  21. SALAGEN [Concomitant]
     Active Substance: PILOCARPINE HYDROCHLORIDE
  22. VITAMIN B [Concomitant]
     Active Substance: VITAMIN B
  23. NEURONTIN [Concomitant]
     Active Substance: GABAPENTIN
  24. PRIVIGEN [Suspect]
     Active Substance: HUMAN IMMUNOGLOBULIN G
     Indication: SYSTEMIC LUPUS ERYTHEMATOSUS
     Route: 042
  25. HUMALOG [Concomitant]
     Active Substance: INSULIN LISPRO
  26. GABAPENTIN. [Concomitant]
     Active Substance: GABAPENTIN
  27. PROAIR HFA [Concomitant]
     Active Substance: ALBUTEROL SULFATE
  28. DIPHENHYDRAMINE [Concomitant]
     Active Substance: DIPHENHYDRAMINE
  29. AZARTHIOPRINE [Concomitant]
  30. PRIVIGEN [Suspect]
     Active Substance: HUMAN IMMUNOGLOBULIN G
     Indication: HYPOGAMMAGLOBULINAEMIA
     Route: 042
  31. PRIVIGEN [Suspect]
     Active Substance: HUMAN IMMUNOGLOBULIN G
     Indication: MULTIPLE SCLEROSIS
     Route: 042
  32. ZITHROMAX [Concomitant]
     Active Substance: AZITHROMYCIN DIHYDRATE
  33. ADVAIR HFA [Concomitant]
     Active Substance: FLUTICASONE PROPIONATE\SALMETEROL XINAFOATE
  34. FERROUS SULFATE [Concomitant]
     Active Substance: FERROUS SULFATE\FERROUS SULFATE, DRIED
  35. IBUPROFEN. [Concomitant]
     Active Substance: IBUPROFEN
  36. HCTZ [Concomitant]
     Active Substance: HYDROCHLOROTHIAZIDE
  37. FOLIC ACID. [Concomitant]
     Active Substance: FOLIC ACID
  38. DILTIAZEM [Concomitant]
     Active Substance: DILTIAZEM
  39. WARFARIN [Concomitant]
     Active Substance: WARFARIN
  40. MORPHINE [Concomitant]
     Active Substance: MORPHINE
  41. MIRALAX [Concomitant]
     Active Substance: POLYETHYLENE GLYCOL 3350
  42. CALCIUM [Concomitant]
     Active Substance: CALCIUM
  43. ASPIRIN. [Concomitant]
     Active Substance: ASPIRIN
  44. CRESTOR [Concomitant]
     Active Substance: ROSUVASTATIN CALCIUM
  45. ATELVIA [Concomitant]
     Active Substance: RISEDRONATE SODIUM
  46. CIPRO [Concomitant]
     Active Substance: CIPROFLOXACIN HYDROCHLORIDE
  47. ALBUTEROL. [Concomitant]
     Active Substance: ALBUTEROL
  48. FLEXERIL [Concomitant]
     Active Substance: CYCLOBENZAPRINE HYDROCHLORIDE
  49. NITROSTAT [Concomitant]
     Active Substance: NITROGLYCERIN
  50. ISOSORBIDE MN ER [Concomitant]
     Active Substance: ISOSORBIDE
  51. VITAMIN D [Concomitant]
     Active Substance: CHOLECALCIFEROL

REACTIONS (1)
  - Investigation [Unknown]

NARRATIVE: CASE EVENT DATE: 20140711
